FAERS Safety Report 4945786-2 (Version None)
Quarter: 2006Q1

REPORT INFORMATION
  Report Type: 
  Country: None (occurrence: None)
  Receive Date: 20060117
  Receipt Date: 20050204
  Transmission Date: 20060701
  Serious: Yes (Hospitalization)
  Sender: FDA-Public Use
  Company Number: A03200500374

PATIENT
  Age: 61 Year
  Sex: Female

DRUGS (9)
  1. PLAVIX [Suspect]
     Indication: MYOCARDIAL INFARCTION
     Dosage: 75 MG QD - ORAL
     Route: 048
     Dates: start: 20020101
  2. ACETYLSALICYLIC ACID SRT [Concomitant]
  3. PARACETAMOL [Concomitant]
  4. BUPROPION HYDROCHLORIDE [Concomitant]
  5. FUROSEMIDE [Concomitant]
  6. ENALAPRIL MALEATE [Concomitant]
  7. TRAZODONE HCL [Concomitant]
  8. SIMVASTATIN [Concomitant]
  9. METOPROLOL [Concomitant]

REACTIONS (3)
  - ANAEMIA [None]
  - ASTHENIA [None]
  - RECTAL HAEMORRHAGE [None]
